FAERS Safety Report 4559569-9 (Version None)
Quarter: 2005Q1

REPORT INFORMATION
  Report Type: 
  Country: None (occurrence: None)
  Receive Date: 20050119
  Receipt Date: 20050106
  Transmission Date: 20050727
  Serious: Yes (Hospitalization, Other)
  Sender: FDA-Public Use
  Company Number: 2004110527

PATIENT
  Age: 57 Year
  Sex: Male
  Weight: 45.8 kg

DRUGS (12)
  1. SULPERAZON (SULBACTAM, CEFOPERAZONE) [Suspect]
     Indication: CHOLANGITIS
     Dosage: 2 GRAM (1 GRAM, 2), INTRAVENOUS
     Route: 042
     Dates: start: 20041103, end: 20041125
  2. SULPERAZON (SULBACTAM, CEFOPERAZONE) [Suspect]
     Indication: ILL-DEFINED DISORDER
     Dosage: 2 GRAM (1 GRAM, 2), INTRAVENOUS
     Route: 042
     Dates: start: 20041103, end: 20041125
  3. MIDAZOLAM HCL [Concomitant]
  4. HYOSCINE HBR HYT [Concomitant]
  5. LACTEC (CALCIUM CHLORIDE ANHYDROUS, POTASSIUM CHLORIDE, SODIUM CHLORID [Concomitant]
  6. RANITIDINE HYDROCHLORIDE [Concomitant]
  7. SOLDEM 3A (CARBOHYDRATES NOS, POTASSIUM CHLORIDE, SODIUM CHLORIDE, SOD [Concomitant]
  8. DICLOFENAC SODIUM [Concomitant]
  9. URSODEOXYCHOLIC ACID (URSODEOXYCHOLIC ACID) [Concomitant]
  10. REBAMIPIDE (REBAMIPIDE) [Concomitant]
  11. CLEMASTINE (CLEMASTINE) [Concomitant]
  12. POLAPREZINC (POLAPREZINC) [Concomitant]

REACTIONS (11)
  - ANAPHYLACTIC SHOCK [None]
  - BILIARY ANASTOMOSIS COMPLICATION [None]
  - BLOOD GLUCOSE INCREASED [None]
  - BLOOD PRESSURE DECREASED [None]
  - CHOLELITHIASIS [None]
  - CIRCULATORY COLLAPSE [None]
  - FAECAL INCONTINENCE [None]
  - HEPATIC NEOPLASM MALIGNANT [None]
  - HYPERHIDROSIS [None]
  - JAUNDICE CHOLESTATIC [None]
  - OXYGEN SATURATION DECREASED [None]
